FAERS Safety Report 4392812-8 (Version None)
Quarter: 2004Q3

REPORT INFORMATION
  Report Type: 
  Country: None (occurrence: None)
  Receive Date: 20040702
  Receipt Date: 20040317
  Transmission Date: 20050211
  Serious: Yes (Other)
  Sender: FDA-Public Use
  Company Number: 2004UW05140

PATIENT
  Age: 64 Year
  Sex: Female
  Weight: 62.5964 kg

DRUGS (5)
  1. CRESTOR [Suspect]
     Indication: HYPERCHOLESTEROLAEMIA
     Dosage: 10 MG QD PO
     Route: 048
     Dates: start: 20040112, end: 20040315
  2. DESYREL [Concomitant]
  3. EFFEXOR [Concomitant]
  4. XANAX [Concomitant]
  5. ASPIRIN [Concomitant]

REACTIONS (3)
  - MUSCULAR WEAKNESS [None]
  - PYREXIA [None]
  - TREMOR [None]
